FAERS Safety Report 17631953 (Version 4)
Quarter: 2020Q2

REPORT INFORMATION
  Report Type: Report from Study
  Country: US (occurrence: US)
  Receive Date: 20200406
  Receipt Date: 20200521
  Transmission Date: 20200713
  Serious: No
  Sender: FDA-Public Use
  Company Number: US-CELGENEUS-USA-20200400362

PATIENT
  Age: 61 Year
  Sex: Male
  Weight: 139 kg

DRUGS (8)
  1. ONDANSETRON [Concomitant]
     Active Substance: ONDANSETRON
     Indication: PROPHYLAXIS
     Dosage: 8 MG X ONCE
     Route: 048
     Dates: start: 20191206
  2. NORVASC [Concomitant]
     Active Substance: AMLODIPINE BESYLATE
     Indication: HYPERTENSION
     Dosage: 5 MG/G X 1 X 1 DAYS
     Route: 048
     Dates: start: 20190312
  3. CHOLECALCIFEROL (VITAMIN D3) [Concomitant]
     Indication: VITAMIN SUPPLEMENTATION
     Dosage: 5,000 CAPSULE X ONCE
     Route: 048
     Dates: start: 20181213
  4. FEDRATINIB [Suspect]
     Active Substance: FEDRATINIB
     Indication: MYELOFIBROSIS
     Dosage: 400 MG X 1 X 1 DAYS
     Route: 048
     Dates: start: 20191205
  5. ALBUTEROL??ALBUTEROL 90 MCG/ACTUATION INHALER [406455166]    ORDER DET [Concomitant]
     Indication: DYSPNOEA
     Dosage: 90 UG X PRN
     Route: 055
     Dates: start: 20181213
  6. METOPROLOL TARTRATE (LOPRESSOR) [Concomitant]
     Indication: HYPERTENSION
     Dosage: 50 MG X 2 X 1 DAYS
     Route: 048
     Dates: start: 20181213
  7. BUMETANIDE. [Concomitant]
     Active Substance: BUMETANIDE
     Indication: OEDEMA
     Dosage: 0.5 MG X 2 X 1 DAYS
     Route: 048
     Dates: start: 20200302
  8. SIDENAFIL [Concomitant]
     Active Substance: SILDENAFIL
     Indication: HYPERTENSION
     Dosage: 20 MG X 2 X 1 DAYS
     Route: 048
     Dates: start: 20181213

REACTIONS (1)
  - Vitamin B1 decreased [Recovered/Resolved]

NARRATIVE: CASE EVENT DATE: 20200130
